FAERS Safety Report 18367101 (Version 2)
Quarter: 2020Q4

REPORT INFORMATION
  Report Type: Spontaneous
  Country: IT (occurrence: IT)
  Receive Date: 20201009
  Receipt Date: 20201012
  Transmission Date: 20210114
  Serious: Yes (Other)
  Sender: FDA-Public Use
  Company Number: IT-MYLANLABS-2020M1084953

PATIENT
  Age: 35 Year
  Sex: Male
  Weight: 84 kg

DRUGS (4)
  1. VOLTADVANCE [Concomitant]
     Active Substance: DICLOFENAC SODIUM
     Dosage: UNK, PRN
  2. ARIPIPRAZOLE MYLAN [Suspect]
     Active Substance: ARIPIPRAZOLE
     Indication: SCHIZOAFFECTIVE DISORDER
     Dosage: 5 MILLIGRAM, QD
     Route: 048
  3. DEPAKIN [Suspect]
     Active Substance: VALPROATE SODIUM
     Indication: PRODUCT USED FOR UNKNOWN INDICATION
     Dosage: 250 MILLIGRAM, QD
     Route: 048
  4. LENDORMIN [Suspect]
     Active Substance: BROTIZOLAM
     Indication: PRODUCT USED FOR UNKNOWN INDICATION
     Dosage: 0.25 MILLIGRAM, QD
     Route: 048
     Dates: start: 20200904

REACTIONS (6)
  - Weight fluctuation [Unknown]
  - Tachycardia [Unknown]
  - Asthenia [Unknown]
  - Somnolence [Unknown]
  - Restlessness [Unknown]
  - Movement disorder [Unknown]

NARRATIVE: CASE EVENT DATE: 20200909
